FAERS Safety Report 18055310 (Version 2)
Quarter: 2020Q3

REPORT INFORMATION
  Report Type: Spontaneous
  Country: US (occurrence: US)
  Receive Date: 20200722
  Receipt Date: 20200923
  Transmission Date: 20201103
  Serious: No
  Sender: FDA-Public Use
  Company Number: US-ASTRAZENECA-2020SE90380

PATIENT
  Age: 1063 Month
  Sex: Male
  Weight: 98.9 kg

DRUGS (1)
  1. BYDUREON [Suspect]
     Active Substance: EXENATIDE
     Indication: DIABETES MELLITUS
     Route: 058
     Dates: start: 20200617

REACTIONS (5)
  - Device issue [Unknown]
  - Intentional device misuse [Not Recovered/Not Resolved]
  - Malaise [Unknown]
  - Circumstance or information capable of leading to medication error [Not Recovered/Not Resolved]
  - Product label confusion [Not Recovered/Not Resolved]

NARRATIVE: CASE EVENT DATE: 202006
